FAERS Safety Report 6921014-3 (Version None)
Quarter: 2010Q3

REPORT INFORMATION
  Report Type: 
  Country: None (occurrence: None)
  Receive Date: 20100812
  Receipt Date: 20100803
  Transmission Date: 20110219
  Serious: Yes (Hospitalization, Other)
  Sender: FDA-Public Use
  Company Number: US-PFIZER INC-2010044575

PATIENT
  Sex: Female

DRUGS (3)
  1. CHANTIX [Suspect]
     Indication: SMOKING CESSATION THERAPY
     Dosage: UNK
     Dates: start: 20070113, end: 20070228
  2. PROVIGIL [Concomitant]
     Indication: HYPERSOMNIA
     Dosage: UNK
     Dates: start: 20060101, end: 20080101
  3. PROTONIX [Concomitant]
     Indication: GASTROOESOPHAGEAL REFLUX DISEASE
     Dosage: UNK
     Dates: start: 20050101, end: 20080101

REACTIONS (6)
  - AGGRESSION [None]
  - ANXIETY [None]
  - DEPRESSION [None]
  - MENTAL DISORDER [None]
  - NIGHTMARE [None]
  - SUICIDE ATTEMPT [None]
